FAERS Safety Report 25393840 (Version 3)
Quarter: 2025Q2

REPORT INFORMATION
  Report Type: Report from Study
  Country: US (occurrence: US)
  Receive Date: 20250604
  Receipt Date: 20250625
  Transmission Date: 20250717
  Serious: Yes (Hospitalization, Other)
  Sender: ROCHE
  Company Number: US-ROCHE-10000296250

PATIENT
  Sex: Female

DRUGS (1)
  1. ENSPRYNG [Suspect]
     Active Substance: SATRALIZUMAB-MWGE
     Indication: Neuromyelitis optica spectrum disorder
     Route: 065

REACTIONS (6)
  - Sensory loss [Unknown]
  - Tremor [Unknown]
  - Neuromyelitis optica spectrum disorder [Recovered/Resolved]
  - Blindness [Unknown]
  - Intentional product misuse [Unknown]
  - Burning sensation [Recovered/Resolved]
